FAERS Safety Report 20408680 (Version 2)
Quarter: 2022Q2

REPORT INFORMATION
  Report Type: Report from Study
  Country: CA (occurrence: CA)
  Receive Date: 20220201
  Receipt Date: 20220615
  Transmission Date: 20220721
  Serious: Yes (Other)
  Sender: FDA-Public Use
  Company Number: CA-NOVARTISPH-PHHY2016CA129939

PATIENT
  Age: 39 Year
  Sex: Female

DRUGS (3)
  1. ELTROMBOPAG OLAMINE [Suspect]
     Active Substance: ELTROMBOPAG OLAMINE
     Indication: Immune thrombocytopenia
     Dosage: 50 MG, QD
     Route: 048
     Dates: start: 20160915
  2. ELTROMBOPAG OLAMINE [Suspect]
     Active Substance: ELTROMBOPAG OLAMINE
     Dosage: 50 MG, QD
     Route: 048
  3. ELTROMBOPAG OLAMINE [Suspect]
     Active Substance: ELTROMBOPAG OLAMINE
     Dosage: 50MG ON DAY 1 AND DAY 2; 25 MG ON DAY 3 AND THEN REPEAT THE CYCLE
     Route: 048
     Dates: start: 20200823

REACTIONS (9)
  - Platelet count decreased [Unknown]
  - Cyst [Unknown]
  - Nasopharyngitis [Unknown]
  - Influenza [Unknown]
  - Dizziness [Unknown]
  - Palpitations [Unknown]
  - Feeling jittery [Unknown]
  - Platelet count increased [Recovering/Resolving]
  - Drug ineffective [Unknown]

NARRATIVE: CASE EVENT DATE: 20160901
